FAERS Safety Report 4313864-7 (Version None)
Quarter: 2004Q1

REPORT INFORMATION
  Report Type: 
  Country: None (occurrence: None)
  Receive Date: 20040302
  Receipt Date: 20031121
  Transmission Date: 20041129
  Serious: Yes (Life-Threatening, Hospitalization)
  Sender: FDA-Public Use
  Company Number: BDI-005622

PATIENT
  Age: 60 Year
  Sex: Female

DRUGS (1)
  1. ISOVUE-M 200 [Suspect]
     Indication: SPINAL MYELOGRAM
     Dosage: 20 ML ONCE IT
     Route: 037
     Dates: start: 20031111, end: 20031111

REACTIONS (1)
  - MENINGITIS BACTERIAL [None]
